FAERS Safety Report 16302431 (Version 1)
Quarter: 2019Q2

REPORT INFORMATION
  Report Type: Spontaneous
  Country: US (occurrence: US)
  Receive Date: 20190513
  Receipt Date: 20190513
  Transmission Date: 20190711
  Serious: No
  Sender: FDA-Public Use
  Company Number: US-AUROBINDO-AUR-APL-2019-024693

PATIENT

DRUGS (1)
  1. DORZOLAMIDE HYDROCHLORIDE+TIMOLOL MALEATE OPHTHALMIC SOLUTION USP 2%/0 [Suspect]
     Active Substance: DORZOLAMIDE HYDROCHLORIDE\TIMOLOL MALEATE
     Indication: INTRAOCULAR PRESSURE TEST
     Dosage: TWO TIMES A DAY
     Route: 065
     Dates: start: 20190403

REACTIONS (1)
  - Eye irritation [Unknown]

NARRATIVE: CASE EVENT DATE: 20190403
